FAERS Safety Report 4959732-9 (Version None)
Quarter: 2006Q1

REPORT INFORMATION
  Report Type: 
  Country: None (occurrence: None)
  Receive Date: 20060327
  Receipt Date: 20060109
  Transmission Date: 20060701
  Serious: Yes (Other)
  Sender: FDA-Public Use
  Company Number: S06-BEL-00800-01

PATIENT
  Age: 78 Year
  Sex: Female
  Weight: 50 kg

DRUGS (11)
  1. LEXAPRO [Suspect]
     Indication: ANXIETY
     Dosage: 10 MG QD PO
     Route: 048
     Dates: start: 20051126, end: 20051205
  2. LEXAPRO [Suspect]
     Indication: DEPRESSION
     Dosage: 10 MG QD PO
     Route: 048
     Dates: start: 20051126, end: 20051205
  3. CLOXAZOLAM [Concomitant]
  4. TRAZODONE HCL [Concomitant]
  5. LISINOPRIL [Concomitant]
  6. LORAZEPAM [Concomitant]
  7. METOCLOPRAMIDE [Concomitant]
  8. BISOPROLOL [Concomitant]
  9. PARACETAMOL [Concomitant]
  10. LACTULOSE [Concomitant]
  11. MIRTAZAPINE [Concomitant]

REACTIONS (2)
  - PARALYSIS [None]
  - TRANSIENT ISCHAEMIC ATTACK [None]
